FAERS Safety Report 9919452 (Version 2)
Quarter: 2014Q1

REPORT INFORMATION
  Report Type: Spontaneous
  Country: IT (occurrence: IT)
  Receive Date: 20140224
  Receipt Date: 20140224
  Transmission Date: 20141002
  Serious: Yes (Other)
  Sender: FDA-Public Use
  Company Number: IT-TEVA-460119ISR

PATIENT
  Age: 60 Year
  Sex: Female

DRUGS (2)
  1. OLANZAPINA TEVA 5 MG [Suspect]
     Indication: PSYCHOTIC DISORDER
     Dosage: 5 MILLIGRAM DAILY; ORODISPERSIBLE TABLET
     Route: 048
     Dates: start: 20130130, end: 20140123
  2. OLANZAPINA TEVA 5 MG [Suspect]
     Dosage: 7.5 MILLIGRAM DAILY; ORODISPERSIBLE TABLET
     Route: 048

REACTIONS (4)
  - Product substitution issue [Unknown]
  - Drug effect decreased [Unknown]
  - Agitation [Unknown]
  - Insomnia [Unknown]
